FAERS Safety Report 4944533-8 (Version None)
Quarter: 2006Q1

REPORT INFORMATION
  Report Type: 
  Country: None (occurrence: None)
  Receive Date: 20060123
  Receipt Date: 20051019
  Transmission Date: 20060701
  Serious: No
  Sender: FDA-Public Use
  Company Number: 2005-BP-18573BP

PATIENT

DRUGS (2)
  1. APTIVUS [Suspect]
     Indication: HIV INFECTION
     Dosage: PO
     Route: 048
  2. T-20 (ENFUVIRTIDE) [Concomitant]

REACTIONS (1)
  - DRUG INEFFECTIVE [None]
